FAERS Safety Report 19444696 (Version 2)
Quarter: 2021Q3

REPORT INFORMATION
  Report Type: Spontaneous
  Country: DE (occurrence: DE)
  Receive Date: 20210621
  Receipt Date: 20210712
  Transmission Date: 20211014
  Serious: Yes (Other)
  Sender: FDA-Public Use
  Company Number: DE-MYLANLABS-2021M1035051

PATIENT
  Age: 66 Year
  Sex: Male

DRUGS (27)
  1. CYTARABINE. [Suspect]
     Active Substance: CYTARABINE
     Dosage: INTRAVENTRICULAR 30 MG, DAY 5, CYCLE A AND B
     Route: 020
  2. METHOTREXATE. [Suspect]
     Active Substance: METHOTREXATE
     Dosage: 3 MG, CYCLE (CYCLE C (DAY 3, 4, 5 AND 6))
     Route: 050
  3. METHOTREXATE. [Suspect]
     Active Substance: METHOTREXATE
     Dosage: 3 MG, CYCLE (CYCLE A AND B (DAY 1, 2, 3, 4))
     Route: 050
  4. VINCRISTINE SULFATE. [Suspect]
     Active Substance: VINCRISTINE SULFATE
     Dosage: DAY 1, CYCLE A
     Route: 042
  5. VINCRISTINE SULFATE. [Suspect]
     Active Substance: VINCRISTINE SULFATE
     Dosage: 2 MILLIGRAM, CYCLE (CYCLE A AND B, DAY 1)
     Route: 042
  6. VINDESINE [Suspect]
     Active Substance: VINDESINE
     Indication: CENTRAL NERVOUS SYSTEM LYMPHOMA
     Dosage: 5 MG, DAY 1, CYCLE C
     Route: 042
  7. DEXAMETHASONE. [Suspect]
     Active Substance: DEXAMETHASONE
     Indication: CENTRAL NERVOUS SYSTEM LYMPHOMA
     Dosage: 20 MG/M2 BSA, DAY 1,2,3,4,5, CYCLE C
     Route: 048
  8. METHOTREXATE. [Suspect]
     Active Substance: METHOTREXATE
     Dosage: CYCLE (BSA (CYCLE A AND B, DAY 1; 0.5 G/M2 BSA OVER 30 MIN AND 4.5 G/M2 BSA OVER 23.5 HOURS PER INFU
     Route: 042
  9. CYTARABINE. [Suspect]
     Active Substance: CYTARABINE
     Dosage: 30 MG, CYCLE (CYCLE A AND B, DAY 5)
     Route: 050
  10. CYTARABINE. [Suspect]
     Active Substance: CYTARABINE
     Dosage: 30 MG, CYCLE (CYCLE C, DAY 7)
     Route: 050
  11. PREDNISOLONE. [Suspect]
     Active Substance: PREDNISOLONE
     Dosage: 2.5 MG, CYCLE (CYCLE C, DAY 3, 4, 5 AND 6)
     Route: 050
  12. IFOSFAMIDE. [Suspect]
     Active Substance: IFOSFAMIDE
     Indication: CENTRAL NERVOUS SYSTEM LYMPHOMA
     Dosage: 2 MG, DAY 1,2,3,4,5 (800 MG/M^2 BSA) (OVER 1 HR VIA INFUSION), CYCLE A
     Route: 042
  13. HOLOXAN [Suspect]
     Active Substance: IFOSFAMIDE
     Indication: CENTRAL NERVOUS SYSTEM LYMPHOMA
     Dosage: 800 MG/M2, CYCLE (OVER 1 HOUR PER INFUSION, CYCLE A; DAY 2, 3, 4 AND 5)
     Route: 042
  14. ENDOXAN                            /00021102/ [Suspect]
     Active Substance: CYCLOPHOSPHAMIDE
     Indication: CENTRAL NERVOUS SYSTEM LYMPHOMA
     Dosage: 200 MG/M2, CYCLE (CYCLE B; DAY 2, 3, 4 AND 5)
     Route: 042
  15. METHOTREXATE. [Suspect]
     Active Substance: METHOTREXATE
     Indication: CENTRAL NERVOUS SYSTEM LYMPHOMA
     Dosage: 5 G/M2 BSA OVER 30 MIN AND 4.5 G/M2 BSA OVER 23.5 HR VIA INFUSION, DAY 1, CYCLE A AND B
     Route: 042
  16. METHOTREXATE. [Suspect]
     Active Substance: METHOTREXATE
     Dosage: INTRAVENTRICULAR, 3 MG, DAY 3,4,5,6, CYCLE C
     Route: 020
  17. METHOTREXATE. [Suspect]
     Active Substance: METHOTREXATE
     Dosage: INTRAVENTRICULAR, 3 MG, DAY 1,2,3,4, CYCLE A AND B
     Route: 020
  18. CYTARABINE. [Suspect]
     Active Substance: CYTARABINE
     Dosage: 3 G/M2 BSA, OVER 3 HR VIA INFUSION, DAY 1,2, CYCLE C
     Route: 042
  19. VINCRISTINE SULFATE. [Suspect]
     Active Substance: VINCRISTINE SULFATE
     Indication: CENTRAL NERVOUS SYSTEM LYMPHOMA
     Dosage: 2 MG, DAY 1, CYCLE B
     Route: 042
  20. CYCLOPHOSPHAMIDE. [Suspect]
     Active Substance: CYCLOPHOSPHAMIDE
     Indication: CENTRAL NERVOUS SYSTEM LYMPHOMA
     Dosage: 200 MG/M2 BSA OVER 1 HR VIA INFUSION, DAY 2, 3, 4, 5, CYCLE B
     Route: 042
  21. CYTARABINE. [Suspect]
     Active Substance: CYTARABINE
     Indication: CENTRAL NERVOUS SYSTEM LYMPHOMA
     Dosage: INTRAVENTRICULAR 30 MG, DAY 7, CYCLE C
     Route: 020
  22. CYTARABINE. [Suspect]
     Active Substance: CYTARABINE
     Dosage: 3 MG/M2 BSA, OVER 3 HR VIA INFUSION, DAY 1,2, CYCLE C
     Route: 042
  23. PREDNISOLONE. [Suspect]
     Active Substance: PREDNISOLONE
     Indication: CENTRAL NERVOUS SYSTEM LYMPHOMA
     Dosage: INTRAVENTRICULAR, 2.5 MG, DAY 3,4,5,6, CYCLE C
     Route: 020
  24. PREDNISOLONE. [Suspect]
     Active Substance: PREDNISOLONE
     Dosage: INTRAVENTRICULAR, 2.5 MG, DAY 1,2,3,4, CYCLE A AND B
     Route: 020
  25. DEXAMETHASONE. [Suspect]
     Active Substance: DEXAMETHASONE
     Dosage: 10 MG/M2 BSA, DAY 1,2,3,4,5, CYCLE A AND B
     Route: 048
  26. PREDNISOLONE. [Suspect]
     Active Substance: PREDNISOLONE
     Dosage: 2.5 MG, CYCLE (CYCLE A AND B, DAY 1, 2, 3, 4)
     Route: 050
  27. MESNA. [Concomitant]
     Active Substance: MESNA
     Indication: PROPHYLAXIS
     Dosage: UNK

REACTIONS (6)
  - Deep vein thrombosis [Unknown]
  - Venous thrombosis limb [Unknown]
  - Thrombocytopenia [Unknown]
  - Leukopenia [Unknown]
  - Axillary vein thrombosis [Unknown]
  - Alopecia areata [Unknown]
